FAERS Safety Report 7529455-0 (Version None)
Quarter: 2011Q2

REPORT INFORMATION
  Report Type: 
  Country: None (occurrence: None)
  Receive Date: 20110607
  Receipt Date: 20110526
  Transmission Date: 20111010
  Serious: Yes (Hospitalization)
  Sender: FDA-Public Use
  Company Number: JP-ELI_LILLY_AND_COMPANY-JP201105007770

PATIENT
  Sex: Male
  Weight: 61.7 kg

DRUGS (8)
  1. OXINORM [Concomitant]
     Indication: CANCER PAIN
     Dosage: 5-10MG, SINGLE
     Route: 048
  2. LOPERAMIDE [Concomitant]
     Indication: DIARRHOEA
     Dosage: 2 MG, SINGLE
     Route: 048
  3. GEMCITABINE HYDROCHLORIDE [Suspect]
     Dosage: UNK, OTHER
     Route: 042
     Dates: start: 20110519, end: 20110519
  4. OTHER PHARMA COMPANY INV DRUG [Suspect]
     Indication: PANCREATIC CARCINOMA
     Dosage: 1 ML, WEEKLY (1/W)
     Route: 065
     Dates: start: 20110324, end: 20110519
  5. GEMCITABINE HYDROCHLORIDE [Suspect]
     Dosage: UNK, OTHER
     Route: 042
     Dates: start: 20110421, end: 20110421
  6. PROCHLORPERAZINE [Concomitant]
     Indication: PROPHYLAXIS OF NAUSEA AND VOMITING
     Dosage: 10 MG, BID
     Route: 048
     Dates: start: 20110414
  7. GEMCITABINE HYDROCHLORIDE [Suspect]
     Indication: PANCREATIC CARCINOMA
     Dosage: 1699 MG, OTHER
     Route: 042
     Dates: start: 20110324, end: 20110324
  8. OXYCONTIN [Concomitant]
     Indication: CANCER PAIN
     Dosage: 20 MG, UNK
     Route: 048
     Dates: start: 20110506

REACTIONS (1)
  - APPENDICITIS [None]
